FAERS Safety Report 5419183-X (Version None)
Quarter: 2007Q3

REPORT INFORMATION
  Report Type: 
  Country: None (occurrence: None)
  Receive Date: 20070815
  Receipt Date: 20070815
  Transmission Date: 20080115
  Serious: Yes (Hospitalization)
  Sender: FDA-Public Use
  Company Number: None

PATIENT
  Age: 72 Year
  Sex: Male
  Weight: 74.3899 kg

DRUGS (10)
  1. ATACAND [Suspect]
     Dosage: 32MG ONCE DAILY PO
     Route: 048
     Dates: start: 20060721
  2. ALLOPURINOL [Suspect]
     Dosage: 150MG ONCE DAILY PO
     Route: 048
     Dates: start: 20060721
  3. PLAVIX [Concomitant]
  4. SIMVASTATIN [Concomitant]
  5. ASPIRIN [Concomitant]
  6. FELODIPINE [Concomitant]
  7. HYDROCHLOROTHIAZIDE [Concomitant]
  8. GLYBURIDE [Concomitant]
  9. AVANDIA [Concomitant]
  10. ZANTAC 150 [Concomitant]

REACTIONS (2)
  - ANGINA UNSTABLE [None]
  - PERCUTANEOUS CORONARY INTERVENTION [None]
